FAERS Safety Report 5748624-3 (Version None)
Quarter: 2008Q2

REPORT INFORMATION
  Report Type: 
  Country: None (occurrence: None)
  Receive Date: 20080521
  Receipt Date: 20080215
  Transmission Date: 20081010
  Serious: Yes (Other)
  Sender: FDA-Public Use
  Company Number: 2007US002552

PATIENT
  Sex: Male

DRUGS (1)
  1. PROTOPIC [Suspect]
     Indication: DERMATITIS
     Dosage: BID, TOPICAL
     Route: 061
     Dates: start: 20040401

REACTIONS (1)
  - NON-HODGKIN'S LYMPHOMA [None]
